FAERS Safety Report 17809580 (Version 1)
Quarter: 2020Q2

REPORT INFORMATION
  Report Type: Spontaneous
  Country: CA (occurrence: CA)
  Receive Date: 20200521
  Receipt Date: 20200521
  Transmission Date: 20200714
  Serious: Yes (Other)
  Sender: FDA-Public Use
  Company Number: CA-RECKITT BENCKISER HEALTHCARE INT LIMITED-RB-87035-2020

PATIENT
  Age: 55 Year
  Sex: Female

DRUGS (2)
  1. STREPSILS (AMYLMETACRESOL/DICHLOROBENZYL ALCOHOL) [Suspect]
     Active Substance: AMYLMETACRESOL\DICHLOROBENZYL ALCOHOL
  2. CEPACOL EXTRA STRENGTH SORE THROAT HONEY LEMON [Suspect]
     Active Substance: BENZOCAINE\MENTHOL
     Indication: OROPHARYNGEAL PAIN
     Dosage: 1 DOSAGE FORM, SINGLE
     Route: 048
     Dates: start: 20200510, end: 20200510

REACTIONS (3)
  - Product complaint [Unknown]
  - Throat tightness [Recovered/Resolved]
  - Choking sensation [Recovered/Resolved]

NARRATIVE: CASE EVENT DATE: 20200510
